FAERS Safety Report 5706608-5 (Version None)
Quarter: 2008Q2

REPORT INFORMATION
  Report Type: 
  Country: None (occurrence: None)
  Receive Date: 20080415
  Receipt Date: 20080401
  Transmission Date: 20081010
  Serious: Yes (Life-Threatening, Hospitalization, Disabling, Other)
  Sender: FDA-Public Use
  Company Number: US-ELI_LILLY_AND_COMPANY-US200804000224

PATIENT
  Sex: Male
  Weight: 68.027 kg

DRUGS (1)
  1. STRATTERA [Suspect]
     Dosage: 40 MG, 2/D
     Dates: start: 20040901, end: 20071201

REACTIONS (4)
  - BRAIN INJURY [None]
  - CARDIAC ARREST [None]
  - CONDUCTION DISORDER [None]
  - HEART RATE INCREASED [None]
